FAERS Safety Report 7306137 (Version 4)
Quarter: 2020Q3

REPORT INFORMATION
  Report Type: Report from Study
  Country: JP (occurrence: JP)
  Receive Date: 20100305
  Receipt Date: 20100518
  Transmission Date: 20201104
  Serious: Yes (Hospitalization)
  Sender: FDA-Public Use
  Company Number: JP-WYE-H13752510

PATIENT
  Age: 53 Year
  Sex: Female
  Weight: 48.9 kg

DRUGS (4)
  1. REBAMIPIDE [Concomitant]
     Active Substance: REBAMIPIDE
     Indication: GASTRITIS
     Dosage: NOT PROVIDED
     Route: 065
     Dates: start: 20100126, end: 20100222
  2. NERATINIB [Suspect]
     Active Substance: NERATINIB
     Indication: BREAST CANCER
     Route: 048
     Dates: start: 20091013, end: 20100215
  3. DICLOFENAC [Concomitant]
     Active Substance: DICLOFENAC
     Indication: PYREXIA
     Dosage: NOT PROVIDED
     Route: 065
     Dates: start: 20100213, end: 20100222
  4. VINORELBINE [Suspect]
     Active Substance: VINORELBINE TARTRATE
     Indication: BREAST CANCER
     Dosage: 20 MG/M^2 ON DAYS 1 AND 8 EVERY 3 WEEKS
     Route: 042
     Dates: start: 20091013, end: 20100215

REACTIONS (1)
  - Peritoneal abscess [Recovered/Resolved]

NARRATIVE: CASE EVENT DATE: 20100222
